FAERS Safety Report 9244480 (Version 1)
Quarter: 2013Q2

REPORT INFORMATION
  Report Type: Spontaneous
  Country: US (occurrence: US)
  Receive Date: 20130422
  Receipt Date: 20130422
  Transmission Date: 20140414
  Serious: Yes (Other)
  Sender: FDA-Public Use
  Company Number: US-UCBSA-083718

PATIENT
  Age: 40 Year
  Sex: Female
  Weight: 83.9 kg

DRUGS (11)
  1. CIMZIA [Suspect]
     Indication: CROHN^S DISEASE
     Dosage: UNKNOWN DOSE
  2. HUMIRA [Suspect]
     Indication: CROHN^S DISEASE
  3. HUMIRA [Suspect]
     Indication: CROHN^S DISEASE
     Dates: start: 201205
  4. IMURAN [Concomitant]
     Dosage: UNKNOWN DOSE
  5. METOPROLOL [Concomitant]
     Dosage: UNKNOWN DOSE
  6. VIT B 12 [Concomitant]
     Dosage: 1 IN 1 M
  7. LOPRESSOR [Concomitant]
     Indication: HYPERTENSION
     Dosage: 100 MG
  8. IRON [Concomitant]
     Dosage: UNKNOWN DOSE
  9. CLONOPIN [Concomitant]
     Dosage: UNKNOWN DOSE
  10. DEPO [Concomitant]
     Dosage: UNKNOWN DOSE
  11. CALCIUM WITH VITAMIN D [Concomitant]
     Dosage: UNKNOWN DOSE

REACTIONS (2)
  - Colectomy [Unknown]
  - Anal fistula [Recovered/Resolved]
